FAERS Safety Report 25882174 (Version 1)
Quarter: 2025Q4

REPORT INFORMATION
  Report Type: Spontaneous
  Country: US (occurrence: US)
  Receive Date: 20251006
  Receipt Date: 20251006
  Transmission Date: 20260118
  Serious: No
  Sender: ROCHE
  Company Number: US-ROCHE-10000394788

PATIENT
  Age: 76 Year
  Sex: Female
  Weight: 46.27 kg

DRUGS (6)
  1. ACTEMRA [Suspect]
     Active Substance: TOCILIZUMAB
     Indication: Autoimmune disorder
     Route: 058
     Dates: start: 20250921
  2. ACTEMRA [Suspect]
     Active Substance: TOCILIZUMAB
  3. PREDNISONE [Concomitant]
     Active Substance: PREDNISONE
     Indication: Autoimmune disorder
     Dates: end: 20250920
  4. LANTUS [Concomitant]
     Active Substance: INSULIN GLARGINE
     Indication: Type 2 diabetes mellitus
     Route: 058
  5. HUMALOG [Concomitant]
     Active Substance: INSULIN LISPRO
     Indication: Type 2 diabetes mellitus
     Route: 058
  6. METFORMIN [Concomitant]
     Active Substance: METFORMIN HYDROCHLORIDE
     Indication: Type 2 diabetes mellitus

REACTIONS (3)
  - Off label use [Unknown]
  - Device defective [Unknown]
  - No adverse event [Unknown]

NARRATIVE: CASE EVENT DATE: 20250921
